FAERS Safety Report 4515380-6 (Version None)
Quarter: 2004Q4

REPORT INFORMATION
  Report Type: 
  Country: None (occurrence: None)
  Receive Date: 20041029
  Receipt Date: 20040826
  Transmission Date: 20050328
  Serious: No
  Sender: FDA-Public Use
  Company Number: 200416516US

PATIENT
  Sex: Male

DRUGS (3)
  1. KETEK [Suspect]
     Indication: NASAL SINUS DRAINAGE
     Dosage: 800 MG QD
     Dates: start: 20040823
  2. CHEMOTHERAPY [Concomitant]
  3. RADIATIONS THERAPY NOS [Concomitant]

REACTIONS (1)
  - DRUG INEFFECTIVE [None]
